FAERS Safety Report 8479390-9 (Version None)
Quarter: 2012Q2

REPORT INFORMATION
  Report Type: 
  Country: None (occurrence: None)
  Receive Date: 20120629
  Receipt Date: 20120627
  Transmission Date: 20120825
  Serious: Yes (Other)
  Sender: FDA-Public Use
  Company Number: PHHY2012MX050816

PATIENT
  Sex: Male

DRUGS (4)
  1. SYMBYAX [Concomitant]
     Dosage: 1 DF, DAILY
     Route: 048
     Dates: start: 20120401
  2. TEGRETOL-XR [Suspect]
     Indication: EPILEPSY
     Dosage: 3 DF, QD
     Route: 048
  3. LEVETIRACETAM [Concomitant]
     Dosage: 3 DF, DAILY
     Route: 048
     Dates: start: 20120101
  4. PHENOBARBITAL TAB [Concomitant]
     Dosage: 2 DF, QD
     Route: 048

REACTIONS (2)
  - AGGRESSION [None]
  - FALL [None]
